FAERS Safety Report 5345057-9 (Version None)
Quarter: 2007Q2

REPORT INFORMATION
  Report Type: 
  Country: None (occurrence: None)
  Receive Date: 20070426
  Receipt Date: 20060717
  Transmission Date: 20071010
  Serious: Yes (Hospitalization)
  Sender: FDA-Public Use
  Company Number: CIP06001623

PATIENT
  Age: 60 Year
  Sex: Female

DRUGS (1)
  1. MACRODANTIN(NITROFURANTOIN MONOHYDRATE/MACROCRYSTALS) CAPSULE [Suspect]
     Indication: SINUSITIS
     Dosage: ORAL
     Route: 048

REACTIONS (1)
  - PYREXIA [None]
